FAERS Safety Report 9877600 (Version 2)
Quarter: 2014Q1

REPORT INFORMATION
  Report Type: Spontaneous
  Country: US (occurrence: US)
  Receive Date: 20140206
  Receipt Date: 20140206
  Transmission Date: 20141002
  Serious: No
  Sender: FDA-Public Use
  Company Number: US-ACORDA-ACO_38617_2013

PATIENT
  Age: 46 Year
  Sex: Male

DRUGS (6)
  1. AMPYRA [Suspect]
     Indication: MULTIPLE SCLEROSIS
     Dosage: 10 MG, Q 12 HRS
     Route: 048
     Dates: start: 201308, end: 20130904
  2. AVONEX [Suspect]
     Indication: MULTIPLE SCLEROSIS
     Route: 065
  3. KIDS GUMMY BEAR VITAMINS [Concomitant]
     Indication: PRODUCT USED FOR UNKNOWN INDICATION
     Dosage: UNK
  4. ZANTAC 75 DISSOLVE [Concomitant]
     Indication: PRODUCT USED FOR UNKNOWN INDICATION
     Dosage: UNK
  5. ADVIL [Concomitant]
     Indication: PRODUCT USED FOR UNKNOWN INDICATION
     Dosage: UNK
  6. ALOE VERA [Concomitant]
     Indication: PRODUCT USED FOR UNKNOWN INDICATION
     Dosage: UNK

REACTIONS (7)
  - Renal pain [Unknown]
  - Chromaturia [Unknown]
  - Hypoaesthesia [Unknown]
  - Influenza like illness [Recovered/Resolved]
  - Injection site pain [Unknown]
  - Adverse event [Unknown]
  - Paraesthesia [Unknown]
